FAERS Safety Report 7357321-2 (Version None)
Quarter: 2011Q1

REPORT INFORMATION
  Report Type: 
  Country: None (occurrence: None)
  Receive Date: 20110307
  Receipt Date: 20090130
  Transmission Date: 20110831
  Serious: Yes (Other)
  Sender: FDA-Public Use
  Company Number: UK-2009-00022

PATIENT
  Age: 43 Year
  Sex: Male

DRUGS (8)
  1. SIMVASTATIN [Suspect]
     Indication: PRODUCT USED FOR UNKNOWN INDICATION
  2. FLUCONAZOLE [Suspect]
     Indication: PRODUCT USED FOR UNKNOWN INDICATION
     Dosage: INTRAVENOUS
     Route: 042
  3. METFORMIN HCL [Concomitant]
  4. RAMIPRIL [Concomitant]
  5. GLICLAZIDE(UNKNOWN) [Concomitant]
  6. FLUCONAZOLE(UNKNOWN) [Concomitant]
  7. CLOPIDOGREL(UNKNOWN) [Concomitant]
  8. ATENOLOL [Concomitant]

REACTIONS (26)
  - ORAL CANDIDIASIS [None]
  - CACHEXIA [None]
  - HIV ANTIBODY POSITIVE [None]
  - ALANINE AMINOTRANSFERASE INCREASED [None]
  - BLOOD LACTATE DEHYDROGENASE INCREASED [None]
  - BLOOD SODIUM DECREASED [None]
  - BLOOD ALBUMIN DECREASED [None]
  - RESPIRATORY FAILURE [None]
  - BLOOD ALKALINE PHOSPHATASE INCREASED [None]
  - GAMMA-GLUTAMYLTRANSFERASE INCREASED [None]
  - BLOOD CREATINE PHOSPHOKINASE INCREASED [None]
  - TUBERCULOSIS [None]
  - GENITAL HERPES [None]
  - BLOOD POTASSIUM INCREASED [None]
  - PNEUMOCYSTIS JIROVECI PNEUMONIA [None]
  - GAIT DISTURBANCE [None]
  - HYPOREFLEXIA [None]
  - CHROMATURIA [None]
  - RED BLOOD CELLS URINE POSITIVE [None]
  - HEPATITIS B SURFACE ANTIGEN POSITIVE [None]
  - DRUG INTERACTION [None]
  - RHABDOMYOLYSIS [None]
  - HAEMOGLOBIN DECREASED [None]
  - MYCOBACTERIUM TUBERCULOSIS COMPLEX TEST POSITIVE [None]
  - WEIGHT DECREASED [None]
  - DECREASED APPETITE [None]
